FAERS Safety Report 9619808 (Version 2)
Quarter: 2013Q4

REPORT INFORMATION
  Report Type: Report from Study
  Country: GB (occurrence: GB)
  Receive Date: 20131014
  Receipt Date: 20131014
  Transmission Date: 20140711
  Serious: Yes (Death, Hospitalization)
  Sender: FDA-Public Use
  Company Number: GB-ABBVIE-12P-167-1003286-00

PATIENT
  Age: 50 Year
  Sex: Female
  Weight: 79.4 kg

DRUGS (7)
  1. HUMIRA [Suspect]
     Indication: PSORIASIS
     Route: 058
     Dates: start: 20120208, end: 20120516
  2. RAMIPRIL [Concomitant]
     Indication: PRODUCT USED FOR UNKNOWN INDICATION
     Dates: start: 20111016
  3. AMLODIPINE [Concomitant]
     Indication: PRODUCT USED FOR UNKNOWN INDICATION
     Dates: start: 20110915
  4. VITAMIN B [Concomitant]
     Indication: PRODUCT USED FOR UNKNOWN INDICATION
     Dates: start: 20110715
  5. PARACETAMOL [Concomitant]
     Indication: PRODUCT USED FOR UNKNOWN INDICATION
     Dates: start: 20110701
  6. CHLORDIAZEPOXIDE [Concomitant]
     Indication: PRODUCT USED FOR UNKNOWN INDICATION
     Dates: start: 20120110, end: 20120116
  7. ACITRETIN [Concomitant]
     Indication: PRODUCT USED FOR UNKNOWN INDICATION
     Dates: start: 20120106, end: 20120515

REACTIONS (24)
  - Pulmonary oedema [Fatal]
  - Haematemesis [Fatal]
  - Oesophagitis [Fatal]
  - Sepsis [Fatal]
  - Escherichia sepsis [Fatal]
  - Escherichia sepsis [Fatal]
  - Cardiac failure [Fatal]
  - Somnolence [Fatal]
  - Haematemesis [Fatal]
  - Rectal haemorrhage [Fatal]
  - Syncope [Unknown]
  - Dehydration [Unknown]
  - Panic attack [Unknown]
  - Malnutrition [Unknown]
  - Diarrhoea [Unknown]
  - Renal failure [Unknown]
  - Anaemia [Unknown]
  - Abdominal pain [Unknown]
  - Electrolyte imbalance [Unknown]
  - Ascites [Unknown]
  - Alcoholic liver disease [Unknown]
  - Colitis [Unknown]
  - Respiratory failure [Unknown]
  - Metabolic acidosis [Unknown]
